FAERS Safety Report 7512997-1 (Version None)
Quarter: 2011Q2

REPORT INFORMATION
  Report Type: 
  Country: None (occurrence: None)
  Receive Date: 20110531
  Receipt Date: 20100708
  Transmission Date: 20111010
  Serious: Yes (Other)
  Sender: FDA-Public Use
  Company Number: US-NOVEN-SPV1-2010-00923

PATIENT

DRUGS (3)
  1. DAYTRANA [Suspect]
     Dosage: 10 MG, 1X/DAY:QD
     Route: 062
     Dates: start: 20100421, end: 20100421
  2. VITAMIN A [Concomitant]
     Dosage: 5000 UL, 1X/DAY:QD
     Route: 048
     Dates: start: 20080101
  3. SYNTHROID [Concomitant]
     Dosage: 1.25 MG, 1X/DAY:QD
     Route: 048
     Dates: start: 20080101

REACTIONS (2)
  - CONVULSION [None]
  - OFF LABEL USE [None]
